FAERS Safety Report 10419422 (Version 1)
Quarter: 2014Q3

REPORT INFORMATION
  Report Type: Spontaneous
  Country: TW (occurrence: TW)
  Receive Date: 20140829
  Receipt Date: 20140829
  Transmission Date: 20150326
  Serious: Yes (Hospitalization, Other)
  Sender: FDA-Public Use
  Company Number: PHHY2014TW107155

PATIENT
  Age: 33 Year
  Sex: Male

DRUGS (6)
  1. VALPROIC ACID. [Suspect]
     Active Substance: VALPROIC ACID
     Indication: MANIA
  2. OLANZAPINE. [Suspect]
     Active Substance: OLANZAPINE
     Indication: MANIA
     Dosage: 20 MG, PER DAY
     Route: 048
  3. CARBAMAZEPINE. [Concomitant]
     Active Substance: CARBAMAZEPINE
     Indication: MANIA
     Dosage: 800 MG, PER DAY
  4. LITHIUM CARBONATE. [Suspect]
     Active Substance: LITHIUM CARBONATE
     Indication: MANIA
  5. CLOZAPINE. [Suspect]
     Active Substance: CLOZAPINE
     Indication: MANIA
     Dosage: 500 MG, PER DAY
  6. RISPERIDONE. [Suspect]
     Active Substance: RISPERIDONE
     Indication: MANIA

REACTIONS (4)
  - Postoperative ileus [Recovered/Resolved]
  - Gastrointestinal hypomotility [Recovered/Resolved]
  - Large intestinal obstruction [Recovered/Resolved]
  - Drug ineffective [Unknown]
